FAERS Safety Report 7907708-1 (Version None)
Quarter: 2011Q4

REPORT INFORMATION
  Report Type: 
  Country: None (occurrence: None)
  Receive Date: 20111110
  Receipt Date: 20111028
  Transmission Date: 20120403
  Serious: Yes (Other)
  Sender: FDA-Public Use
  Company Number: CA-ELI_LILLY_AND_COMPANY-CA201110007903

PATIENT
  Sex: Male

DRUGS (5)
  1. ASPIRIN [Concomitant]
  2. LIPITOR [Concomitant]
  3. ISONIAZID [Concomitant]
  4. LISINOPRIL [Concomitant]
  5. ZYPREXA [Suspect]
     Dosage: 5 MG, UNK

REACTIONS (3)
  - DIABETES MELLITUS [None]
  - MYOCARDIAL INFARCTION [None]
  - DIABETIC COMA [None]
